FAERS Safety Report 16945156 (Version 3)
Quarter: 2020Q2

REPORT INFORMATION
  Report Type: Spontaneous
  Country: US (occurrence: US)
  Receive Date: 20191022
  Receipt Date: 20200520
  Transmission Date: 20200713
  Serious: Yes (Other)
  Sender: FDA-Public Use
  Company Number: US-JNJFOC-20191029335

PATIENT
  Sex: Male
  Weight: 70.37 kg

DRUGS (1)
  1. INVEGA [Suspect]
     Active Substance: PALIPERIDONE
     Indication: PRODUCT USED FOR UNKNOWN INDICATION
     Route: 048

REACTIONS (4)
  - Rheumatic heart disease [Recovering/Resolving]
  - Gastric neoplasm [Unknown]
  - Weight decreased [Unknown]
  - Deafness [Unknown]

NARRATIVE: CASE EVENT DATE: 2016
